FAERS Safety Report 4400946-4 (Version None)
Quarter: 2004Q3

REPORT INFORMATION
  Report Type: 
  Country: None (occurrence: None)
  Receive Date: 20040907
  Receipt Date: 20030820
  Transmission Date: 20050211
  Serious: Yes (Other)
  Sender: FDA-Public Use
  Company Number: US-BRISTOL-MYERS SQUIBB COMPANY-12360483

PATIENT
  Age: 79 Year
  Sex: Female
  Weight: 59 kg

DRUGS (5)
  1. COUMADIN [Suspect]
     Indication: CEREBROVASCULAR ACCIDENT
     Dosage: DOSE VALUE:  VARIED; 3MG AT PRESENT.
     Route: 048
     Dates: start: 20000401
  2. BETAPACE [Concomitant]
  3. ESTER-C [Concomitant]
  4. MULTIVITAMIN [Concomitant]
  5. VITAMIN D [Concomitant]

REACTIONS (5)
  - INTERNATIONAL NORMALISED RATIO ABNORMAL [None]
  - INTERNATIONAL NORMALISED RATIO INCREASED [None]
  - TRANSIENT ISCHAEMIC ATTACK [None]
  - VAGINAL HAEMORRHAGE [None]
  - WEIGHT DECREASED [None]
